FAERS Safety Report 18530959 (Version 1)
Quarter: 2020Q4

REPORT INFORMATION
  Report Type: Spontaneous
  Country: US (occurrence: US)
  Receive Date: 20201121
  Receipt Date: 20201121
  Transmission Date: 20210114
  Serious: No
  Sender: FDA-Public Use
  Company Number: US-009507513-2011USA007775

PATIENT
  Age: 3 Year
  Sex: Male

DRUGS (2)
  1. ELOCON [Suspect]
     Active Substance: MOMETASONE FUROATE
     Indication: VITILIGO
     Dosage: UNK
  2. TACROLIMUS. [Concomitant]
     Active Substance: TACROLIMUS
     Indication: VITILIGO
     Dosage: UNK

REACTIONS (2)
  - Treatment failure [Unknown]
  - Product use in unapproved indication [Unknown]
